FAERS Safety Report 9776002 (Version 2)
Quarter: 2014Q1

REPORT INFORMATION
  Report Type: Spontaneous
  Country: DE (occurrence: DE)
  Receive Date: 20131220
  Receipt Date: 20140115
  Transmission Date: 20141002
  Serious: Yes (Other)
  Sender: FDA-Public Use
  Company Number: DE-BRISTOL-MYERS SQUIBB COMPANY-19913607

PATIENT
  Age: 63 Year
  Sex: Male
  Weight: 99 kg

DRUGS (9)
  1. BYETTA [Suspect]
     Indication: DIABETES MELLITUS
     Dosage: 5MCG-9JUL13-13JUL13, 10MCG-15JUL13
     Dates: start: 20130709
  2. METFORMIN HCL [Suspect]
     Indication: DIABETES MELLITUS
     Dosage: 850 1-0-1
  3. LANTUS [Suspect]
     Dosage: 30-0-0-100,
  4. SIMVASTATIN [Concomitant]
     Dosage: 40 0-0-1
  5. EZETROL [Concomitant]
     Dosage: 10 0-0-1
  6. TOREM [Concomitant]
     Dosage: 5 1-0-0,
  7. RAMIPRIL + HCTZ [Concomitant]
  8. NEURONTIN [Concomitant]
     Dosage: 300 1-0-1
  9. ASS [Concomitant]
     Dosage: 100 1-0-0

REACTIONS (2)
  - Respiratory tract infection [Recovered/Resolved]
  - Off label use [Unknown]
